FAERS Safety Report 8050267-6 (Version None)
Quarter: 2012Q1

REPORT INFORMATION
  Report Type: 
  Country: None (occurrence: None)
  Receive Date: 20120111
  Receipt Date: 20101025
  Transmission Date: 20120608
  Serious: No
  Sender: FDA-Public Use
  Company Number: 2010-06146

PATIENT
  Age: 62 Year
  Sex: Female

DRUGS (1)
  1. TUBERSOL [Suspect]
     Indication: IMMUNISATION
     Dosage: I.D.
     Route: 023
     Dates: start: 20090810, end: 20090810

REACTIONS (2)
  - INFLAMMATION [None]
  - SWELLING [None]
